FAERS Safety Report 6881552-9 (Version None)
Quarter: 2010Q3

REPORT INFORMATION
  Report Type: 
  Country: None (occurrence: None)
  Receive Date: 20100729
  Receipt Date: 20100721
  Transmission Date: 20110219
  Serious: Yes (Hospitalization)
  Sender: FDA-Public Use
  Company Number: 161375

PATIENT
  Age: 36 Year
  Sex: Female

DRUGS (2)
  1. AVONEX [Suspect]
     Indication: MULTIPLE SCLEROSIS
     Route: 030
     Dates: start: 20010402
  2. AVONEX [Suspect]
     Route: 030
     Dates: start: 20020208, end: 20020407

REACTIONS (5)
  - BIPOLAR DISORDER [None]
  - MULTI-ORGAN FAILURE [None]
  - MULTIPLE SCLEROSIS RELAPSE [None]
  - PARALYSIS [None]
  - PSYCHOTIC DISORDER [None]
